FAERS Safety Report 11831273 (Version 1)
Quarter: 2015Q4

REPORT INFORMATION
  Report Type: Report from Study
  Country: US (occurrence: US)
  Receive Date: 20151214
  Receipt Date: 20151214
  Transmission Date: 20160305
  Serious: No
  Sender: FDA-Public Use
  Company Number: PHEH2015US002351

PATIENT
  Age: 46 Year
  Sex: Male
  Weight: 81.63 kg

DRUGS (11)
  1. GILENYA [Suspect]
     Active Substance: FINGOLIMOD HYDROCHLORIDE
     Indication: MULTIPLE SCLEROSIS
     Dosage: 0.5 MG, QD
     Route: 048
     Dates: start: 20110119
  2. AMPYRA [Concomitant]
     Active Substance: DALFAMPRIDINE
     Indication: PRODUCT USED FOR UNKNOWN INDICATION
     Dosage: 10 MG, UNK
     Route: 065
  3. BACLOFEN. [Concomitant]
     Active Substance: BACLOFEN
     Indication: PRODUCT USED FOR UNKNOWN INDICATION
     Dosage: 10 MG, UNK
     Route: 065
  4. IBUPROFEN. [Concomitant]
     Active Substance: IBUPROFEN
     Indication: PRODUCT USED FOR UNKNOWN INDICATION
     Route: 065
  5. DULOXETINE. [Concomitant]
     Active Substance: DULOXETINE
     Indication: PRODUCT USED FOR UNKNOWN INDICATION
     Dosage: 60 MG, UNK
     Route: 065
  6. ADVIL PM [Concomitant]
     Active Substance: DIPHENHYDRAMINE CITRATE\IBUPROFEN
     Indication: PRODUCT USED FOR UNKNOWN INDICATION
     Route: 065
  7. TYLENOL PM [Concomitant]
     Active Substance: ACETAMINOPHEN\DIPHENHYDRAMINE
     Indication: PRODUCT USED FOR UNKNOWN INDICATION
     Route: 065
  8. GABAPENTIN. [Concomitant]
     Active Substance: GABAPENTIN
     Indication: PRODUCT USED FOR UNKNOWN INDICATION
     Dosage: 300 MG, UNK
     Route: 065
  9. ESCITALOPRAM [Concomitant]
     Active Substance: ESCITALOPRAM OXALATE
     Indication: PRODUCT USED FOR UNKNOWN INDICATION
     Dosage: 10 MG, UNK
     Route: 065
  10. TAMSULOSIN [Concomitant]
     Active Substance: TAMSULOSIN
     Indication: PRODUCT USED FOR UNKNOWN INDICATION
     Route: 065
  11. CIALIS [Concomitant]
     Active Substance: TADALAFIL
     Indication: PRODUCT USED FOR UNKNOWN INDICATION
     Dosage: 5 MG, UNK
     Route: 065

REACTIONS (37)
  - Muscular weakness [Unknown]
  - White matter lesion [Unknown]
  - Tremor [Unknown]
  - Vitamin D deficiency [Unknown]
  - Pain in extremity [Unknown]
  - Syncope [Unknown]
  - Snoring [Unknown]
  - Upper airway resistance syndrome [Unknown]
  - Feeling hot [Not Recovered/Not Resolved]
  - Blood glucose decreased [Unknown]
  - Globulins decreased [Unknown]
  - Eye disorder [Unknown]
  - Brain stem syndrome [Unknown]
  - Depression [Unknown]
  - Leukopenia [Unknown]
  - Lymphopenia [Unknown]
  - Clonus [Unknown]
  - Gait disturbance [Recovering/Resolving]
  - Vitamin B12 decreased [Unknown]
  - Central nervous system lesion [Unknown]
  - Infection [Unknown]
  - Muscle spasms [Unknown]
  - Muscle spasticity [Unknown]
  - Muscle contractions involuntary [Unknown]
  - Balance disorder [Not Recovered/Not Resolved]
  - Circulatory collapse [Unknown]
  - Dizziness [Unknown]
  - Hypoaesthesia [Unknown]
  - Ataxia [Unknown]
  - Spinal osteoarthritis [Unknown]
  - Back pain [Unknown]
  - Insomnia [Unknown]
  - Lhermitte^s sign [Recovering/Resolving]
  - Fatigue [Unknown]
  - Dysphagia [Unknown]
  - Relapsing-remitting multiple sclerosis [Unknown]
  - Memory impairment [Unknown]

NARRATIVE: CASE EVENT DATE: 201108
